FAERS Safety Report 22646175 (Version 1)
Quarter: 2023Q2

REPORT INFORMATION
  Report Type: Spontaneous
  Country: JP (occurrence: JP)
  Receive Date: 20230627
  Receipt Date: 20230627
  Transmission Date: 20230722
  Serious: Yes (Other)
  Sender: FDA-Public Use
  Company Number: JP-Covis Pharma-18673

PATIENT
  Age: 70 Year
  Sex: Female

DRUGS (7)
  1. CICLESONIDE [Suspect]
     Active Substance: CICLESONIDE
     Indication: COVID-19
     Route: 065
  2. FAVIPIRAVIR [Concomitant]
     Active Substance: FAVIPIRAVIR
     Indication: COVID-19
  3. NAFAMOSTAT [Concomitant]
     Active Substance: NAFAMOSTAT
     Indication: COVID-19
  4. OXYGEN [Concomitant]
     Active Substance: OXYGEN
     Indication: COVID-19
     Dosage: 2 L/MIN OF OXYGEN WITH A NASAL CANNULA
  5. OXYGEN [Concomitant]
     Active Substance: OXYGEN
     Dosage: 10 L/ MIN OXYGEN USING A RESERVOIR MASK
  6. OXYGEN [Concomitant]
     Active Substance: OXYGEN
     Dosage: 1 L/MIN OXYGEN WITH A NASAL CANNULA
  7. OXYGEN [Concomitant]
     Active Substance: OXYGEN
     Dosage: 5 L/MIN OF OXYGEN WITH AN OXYGEN MASK

REACTIONS (3)
  - Respiratory failure [Recovered/Resolved]
  - COVID-19 pneumonia [Recovered/Resolved]
  - Product use in unapproved indication [Unknown]
